FAERS Safety Report 16215005 (Version 1)
Quarter: 2019Q2

REPORT INFORMATION
  Report Type: Spontaneous
  Country: US (occurrence: US)
  Receive Date: 20190418
  Receipt Date: 20190418
  Transmission Date: 20190711
  Serious: Yes (Hospitalization)
  Sender: FDA-Public Use
  Company Number: None

PATIENT
  Sex: Male

DRUGS (2)
  1. CAPECITABINE. [Suspect]
     Active Substance: CAPECITABINE
     Indication: PRODUCT USED FOR UNKNOWN INDICATION
     Route: 048
     Dates: start: 20181211
  2. AMLODIPINE 2.5MG [Concomitant]
     Active Substance: AMLODIPINE BESYLATE

REACTIONS (2)
  - Stomatitis [None]
  - Palmar-plantar erythrodysaesthesia syndrome [None]
